FAERS Safety Report 4976186-7 (Version None)
Quarter: 2006Q2

REPORT INFORMATION
  Report Type: 
  Country: None (occurrence: None)
  Receive Date: 20060419
  Receipt Date: 20060407
  Transmission Date: 20061013
  Serious: Yes (Other)
  Sender: FDA-Public Use
  Company Number: DE-JNJFOC-20060402140

PATIENT
  Age: 61 Year
  Sex: Male
  Weight: 105 kg

DRUGS (4)
  1. REMICADE [Suspect]
     Route: 042
  2. REMICADE [Suspect]
     Route: 042
  3. REMICADE [Suspect]
     Route: 042
  4. DICLOFENAC SODIUM [Concomitant]
     Indication: BACK PAIN
     Route: 065

REACTIONS (4)
  - BACK PAIN [None]
  - METASTASES TO BONE [None]
  - METASTASES TO SPINE [None]
  - METASTATIC RENAL CELL CARCINOMA [None]
